FAERS Safety Report 25004465 (Version 1)
Quarter: 2025Q1

REPORT INFORMATION
  Report Type: Spontaneous
  Country: US (occurrence: US)
  Receive Date: 20250224
  Receipt Date: 20250224
  Transmission Date: 20250408
  Serious: No
  Sender: INSUD PHARMA
  Company Number: US-INSUD PHARMA-2502US00923

PATIENT

DRUGS (2)
  1. PROGESTERONE [Suspect]
     Active Substance: PROGESTERONE
     Indication: Hormone replacement therapy
     Route: 067
  2. PROGESTERONE [Suspect]
     Active Substance: PROGESTERONE
     Route: 048

REACTIONS (2)
  - Somnolence [Recovered/Resolved]
  - Product prescribing issue [Unknown]
